FAERS Safety Report 8224645-6 (Version None)
Quarter: 2012Q1

REPORT INFORMATION
  Report Type: 
  Country: None (occurrence: None)
  Receive Date: 20120320
  Receipt Date: 20120320
  Transmission Date: 20120608
  Serious: No
  Sender: FDA-Public Use
  Company Number: None

PATIENT
  Age: 31 Year
  Sex: Male

DRUGS (3)
  1. LENSCALE ALLERGENIC EXTRACT ALK LOT G14992, IF85312 [Suspect]
  2. LENSCALE ALLERGENIC EXTRACT ALK LOT G14992, IF85312 [Suspect]
     Indication: RHINITIS ALLERGIC
     Dosage: Q 2-4 WEEKS
     Dates: start: 20101004, end: 20120301
  3. LENSCALE ALLERGENIC EXTRACT ALK LOT G14992, IF85312 [Suspect]
     Indication: ASTHMA
     Dosage: Q 2-4 WEEKS
     Dates: start: 20101004, end: 20120301

REACTIONS (3)
  - PAIN IN EXTREMITY [None]
  - OEDEMA PERIPHERAL [None]
  - DYSPNOEA [None]
